FAERS Safety Report 5169579-9 (Version None)
Quarter: 2006Q4

REPORT INFORMATION
  Report Type: 
  Country: None (occurrence: None)
  Receive Date: 20060918
  Receipt Date: 20051021
  Transmission Date: 20070319
  Serious: Yes (Hospitalization)
  Sender: FDA-Public Use
  Company Number: US-JNJFOC-20051005252

PATIENT
  Age: 43 Year
  Sex: Female
  Weight: 44.4525 kg

DRUGS (7)
  1. TOPAMAX [Suspect]
     Indication: MIGRAINE
     Dosage: 75 MG, 3 IN 1 DAY, ORAL
     Route: 048
     Dates: start: 20040101
  2. TYLENOL W/ CODEINE NO. 3 [Suspect]
     Indication: MIGRAINE
     Dosage: ORAL
     Route: 048
     Dates: start: 20040101
  3. ABILIFY [Concomitant]
  4. TRILAFON [Concomitant]
  5. ATIVAN [Concomitant]
  6. TRAZODONE HCL [Concomitant]
  7. LEXAPRO [Concomitant]

REACTIONS (2)
  - DIARRHOEA [None]
  - PSYCHOTIC DISORDER [None]
